FAERS Safety Report 8196786-3 (Version None)
Quarter: 2012Q1

REPORT INFORMATION
  Report Type: 
  Country: None (occurrence: None)
  Receive Date: 20120309
  Receipt Date: 20120302
  Transmission Date: 20120608
  Serious: Yes (Other)
  Sender: FDA-Public Use
  Company Number: US-PFIZER INC-2011278715

PATIENT
  Sex: Female
  Weight: 86.168 kg

DRUGS (5)
  1. ZOLOFT [Suspect]
     Dosage: 150 MG
     Route: 048
  2. LYRICA [Suspect]
     Indication: BACK PAIN
     Dosage: 50 MG, 3X/DAY
     Route: 048
     Dates: start: 20110101
  3. ZOLOFT [Suspect]
     Indication: DEPRESSION
     Dosage: 50 MG, 1X/DAY
     Route: 048
     Dates: start: 20110101
  4. GEODON [Suspect]
     Dosage: 40 MG, UNK
     Route: 048
     Dates: start: 20111001, end: 20111101
  5. ZOLOFT [Suspect]
     Dosage: 100 MG, 1X/DAY
     Route: 048

REACTIONS (14)
  - DISORIENTATION [None]
  - LIMB INJURY [None]
  - DECREASED APPETITE [None]
  - FEELING DRUNK [None]
  - FEELING ABNORMAL [None]
  - UPPER LIMB FRACTURE [None]
  - NERVOUSNESS [None]
  - INCREASED APPETITE [None]
  - PAIN [None]
  - INCORRECT DOSE ADMINISTERED [None]
  - AGGRESSION [None]
  - DRUG INEFFECTIVE [None]
  - BACK PAIN [None]
  - FALL [None]
